FAERS Safety Report 9506495 (Version 3)
Quarter: 2013Q4

REPORT INFORMATION
  Report Type: Report from Study
  Country: BR (occurrence: BR)
  Receive Date: 20130906
  Receipt Date: 20131007
  Transmission Date: 20140711
  Serious: Yes (Hospitalization, Other)
  Sender: FDA-Public Use
  Company Number: PHHY2013BR097660

PATIENT
  Age: 51 Year
  Sex: Male

DRUGS (8)
  1. FORMOTEROL [Suspect]
     Indication: OBSTRUCTIVE AIRWAYS DISORDER
     Dosage: 24 UG/ DAY
  2. FORMOTEROL [Suspect]
     Dosage: 48 UG/ DAY
  3. BUDESONIDE [Suspect]
     Indication: OBSTRUCTIVE AIRWAYS DISORDER
     Dosage: 800 UG/DAY
  4. BUDESONIDE [Suspect]
     Dosage: 1200 UG/DAY
  5. BUDESONIDE [Suspect]
     Dosage: 1600 UG/DAY
  6. CAPTOPRIL [Concomitant]
     Dosage: UNK UKN, UNK
  7. HYDROCHLOROTHIAZIDE [Concomitant]
     Dosage: UNK UKN, UNK
  8. GLIBENCLAMIDE [Concomitant]
     Dosage: UNK UKN, UNK

REACTIONS (5)
  - Obstructive airways disorder [Unknown]
  - Condition aggravated [Unknown]
  - Infection [Unknown]
  - Dyspnoea exertional [Unknown]
  - Drug ineffective [Unknown]
